FAERS Safety Report 11154734 (Version 1)
Quarter: 2015Q2

REPORT INFORMATION
  Report Type: Spontaneous
  Country: US (occurrence: None)
  Receive Date: 20150601
  Receipt Date: 20150601
  Transmission Date: 20150821
  Serious: Yes (Other)
  Sender: FDA-Public Use
  Company Number: None

PATIENT
  Age: 88 Year
  Sex: Female
  Weight: 53.07 kg

DRUGS (10)
  1. NOVOLOS [Concomitant]
  2. KEPPRA [Concomitant]
     Active Substance: LEVETIRACETAM
  3. METAFORMIN [Concomitant]
  4. FERROUS SULFATE [Concomitant]
     Active Substance: FERROUS SULFATE\FERROUS SULFATE, DRIED
  5. VITAMIN C [Concomitant]
     Active Substance: ASCORBIC ACID
  6. NUEDEXTA [Suspect]
     Active Substance: DEXTROMETHORPHAN HYDROBROMIDE\QUINIDINE SULFATE
     Indication: AFFECT LABILITY
     Dosage: 20-10?ONE QD?PO?THERAPY?3/29?3/30
     Route: 048
  7. LONTUS [Concomitant]
  8. MEGACE [Concomitant]
     Active Substance: MEGESTROL ACETATE
  9. CLONODINE [Concomitant]
  10. SIMVASTATIN. [Concomitant]
     Active Substance: SIMVASTATIN

REACTIONS (3)
  - Unevaluable event [None]
  - Aggression [None]
  - Hallucination [None]

NARRATIVE: CASE EVENT DATE: 20150330
